FAERS Safety Report 8871092 (Version 1)
Quarter: 2012Q4

REPORT INFORMATION
  Report Type: 
  Country: US (occurrence: US)
  Receive Date: 20121023
  Receipt Date: 20121023
  Transmission Date: 20130627
  Serious: No
  Sender: FDA-Public Use
  Company Number: US-AMGEN-USASP2011068169

PATIENT
  Age: 68 Year
  Sex: Male

DRUGS (1)
  1. ENBREL [Suspect]
     Indication: RHEUMATOID ARTHRITIS
     Dosage: 50 mg, qwk
     Dates: start: 20111215

REACTIONS (12)
  - Nervousness [Recovered/Resolved]
  - Anxiety [Recovered/Resolved]
  - Disturbance in attention [Recovered/Resolved]
  - Paranasal sinus hypersecretion [Not Recovered/Not Resolved]
  - Headache [Recovered/Resolved]
  - Cough [Not Recovered/Not Resolved]
  - Feeling abnormal [Recovered/Resolved]
  - Irritability [Recovered/Resolved]
  - Lower respiratory tract infection [Not Recovered/Not Resolved]
  - Nasopharyngitis [Not Recovered/Not Resolved]
  - Diarrhoea [Recovered/Resolved]
  - Rash macular [Not Recovered/Not Resolved]
